FAERS Safety Report 5086018-7 (Version None)
Quarter: 2006Q3

REPORT INFORMATION
  Report Type: 
  Country: None (occurrence: None)
  Receive Date: 20060817
  Receipt Date: 20060802
  Transmission Date: 20061208
  Serious: Yes (Other)
  Sender: FDA-Public Use
  Company Number: GXKR2006ES04469

PATIENT
  Age: 26 Year
  Sex: Female

DRUGS (2)
  1. FLUOXETINE [Suspect]
     Indication: DYSTHYMIC DISORDER
     Dosage: 20 MG/DAY, ORAL
     Route: 048
  2. ETHINYLESTRADIOL+GESTODENE (ETHINYLESTRADIOL, GESTODENE) [Suspect]
     Indication: CONTRACEPTION
     Dosage: 0.02/0.075 MG/DAY, ORAL
     Route: 048

REACTIONS (5)
  - ACTIVITIES OF DAILY LIVING IMPAIRED [None]
  - BLOOD THYROID STIMULATING HORMONE INCREASED [None]
  - DRUG INTERACTION [None]
  - DYSKINESIA [None]
  - MYOCLONUS [None]
